FAERS Safety Report 13504821 (Version 5)
Quarter: 2019Q1

REPORT INFORMATION
  Report Type: Spontaneous
  Country: US (occurrence: US)
  Receive Date: 20170502
  Receipt Date: 20190303
  Transmission Date: 20190417
  Serious: No
  Sender: FDA-Public Use
  Company Number: US-IMPAX LABORATORIES, INC-2017-IPXL-00486

PATIENT
  Sex: Female
  Weight: 66 kg

DRUGS (17)
  1. RYTARY [Suspect]
     Active Substance: CARBIDOPA\LEVODOPA
     Dosage: 61.25/245MG, UNK
     Route: 065
  2. ADVIL [Concomitant]
     Active Substance: IBUPROFEN
     Indication: PAIN
     Dosage: UNK, PRN
     Route: 065
  3. AMANTADINE. [Concomitant]
     Active Substance: AMANTADINE HYDROCHLORIDE
     Indication: PARKINSON^S DISEASE
     Dosage: 100 MG, 2 DF, 2 /DAY
     Route: 048
     Dates: start: 201702
  4. RYTARY [Suspect]
     Active Substance: CARBIDOPA\LEVODOPA
     Dosage: 36.25/145MG, 2 CAPSULES 4 TIMES DAILY
     Route: 048
  5. CARBIDOPA LEVODOPA [Concomitant]
     Active Substance: CARBIDOPA\LEVODOPA
     Indication: PARKINSON^S DISEASE
     Dosage: 25/100 MG, ONE-HALF OR 1 CAPSULE AT 2PM, 4 PM AND 8 PM IMMEDIATE RELEASE
     Route: 065
  6. PAROXETINE. [Concomitant]
     Active Substance: PAROXETINE
     Indication: ANXIETY
  7. RYTARY [Suspect]
     Active Substance: CARBIDOPA\LEVODOPA
     Dosage: 36.25/145MG THREE CAPSULES FOUR TIMES A DAY
     Route: 048
     Dates: start: 2017, end: 2017
  8. RYTARY [Suspect]
     Active Substance: CARBIDOPA\LEVODOPA
     Dosage: 36.25/145MG, 3 CAPSULES AT 8AM, 2 CAPSULES AT 12PM, 2 CAPSULES AT 4PM, AND 2 CAPSULES AT 8PM
     Route: 048
     Dates: start: 2017
  9. RYTARY [Suspect]
     Active Substance: CARBIDOPA\LEVODOPA
     Dosage: 36.25/145MG, 3 CAPSULES PLUS 23.75/95 MG, UNK
     Route: 048
  10. RYTARY [Suspect]
     Active Substance: CARBIDOPA\LEVODOPA
     Dosage: 36.25MG/145MG 2 CAPSULES 5 TIMES DAILY
     Route: 048
  11. CARBIDOPA LEVODOPA [Concomitant]
     Active Substance: CARBIDOPA\LEVODOPA
     Dosage: 25/100 MG, 1 CAPSULE AT 4 PM AND 8 PM CONTROLLED RELEASE
     Route: 065
  12. PAROXETINE. [Concomitant]
     Active Substance: PAROXETINE
     Indication: AFFECTIVE DISORDER
     Dosage: 30 MG, QD
     Route: 065
  13. RYTARY [Suspect]
     Active Substance: CARBIDOPA\LEVODOPA
     Dosage: 36.25MG/145MG 1 CAPSULE 5 TIMES DAILY AND ADDING 23.75MG/95MG 1 CAPSULE 5 TIMES DAILY
     Route: 048
  14. SELEGILINE [Concomitant]
     Active Substance: SELEGILINE
     Indication: PRODUCT USED FOR UNKNOWN INDICATION
     Dosage: UNK
     Route: 065
  15. RYTARY [Suspect]
     Active Substance: CARBIDOPA\LEVODOPA
     Indication: PARKINSON^S DISEASE
     Dosage: 36.25/145MG , 2 CAPSULES FOUR TIMES DAILY AT 8 AM, 12 NOON, 4 PM, AND 8 PM
     Route: 048
     Dates: start: 20170112, end: 201701
  16. RYTARY [Suspect]
     Active Substance: CARBIDOPA\LEVODOPA
     Dosage: 36.25/145MG, 3 CAPSULES AT 8AM, 2 CAPSULE AT NOON
     Route: 048
     Dates: start: 2017
  17. MIRAPEX [Concomitant]
     Active Substance: PRAMIPEXOLE DIHYDROCHLORIDE
     Indication: PARKINSON^S DISEASE
     Dosage: 0.25 MG, UNK
     Route: 065

REACTIONS (5)
  - Labelled drug-food interaction medication error [Unknown]
  - Drug effect incomplete [Not Recovered/Not Resolved]
  - Dyskinesia [Not Recovered/Not Resolved]
  - Drug effect variable [Unknown]
  - On and off phenomenon [Unknown]

NARRATIVE: CASE EVENT DATE: 2017
